FAERS Safety Report 4853233-4 (Version None)
Quarter: 2005Q4

REPORT INFORMATION
  Report Type: 
  Country: None (occurrence: None)
  Receive Date: 20051212
  Receipt Date: 20051128
  Transmission Date: 20060501
  Serious: Yes (Other)
  Sender: FDA-Public Use
  Company Number: 2005162006

PATIENT
  Age: 52 Year
  Sex: Male
  Weight: 86.1834 kg

DRUGS (9)
  1. TIKOSYN [Suspect]
     Indication: ATRIAL FIBRILLATION
     Dosage: 500 MCG (250 MCG, 2 IN 1 D), ORAL
     Route: 048
     Dates: start: 20051025
  2. METFORMIN HCL [Concomitant]
  3. ACTOS [Concomitant]
  4. AMARYL [Concomitant]
  5. ENALAPRIL MALEATE [Concomitant]
  6. INSPRA [Concomitant]
  7. ASPIRIN [Concomitant]
  8. PLAVIX [Concomitant]
  9. FUROSEMIDE [Concomitant]

REACTIONS (5)
  - CONSTIPATION [None]
  - DYSPNOEA [None]
  - IMPLANTABLE DEFIBRILLATOR MALFUNCTION [None]
  - OEDEMA PERIPHERAL [None]
  - SLEEP DISORDER [None]
